FAERS Safety Report 6435354-8 (Version None)
Quarter: 2009Q4

REPORT INFORMATION
  Report Type: 
  Country: None (occurrence: None)
  Receive Date: 20091106
  Receipt Date: 20091026
  Transmission Date: 20100525
  Serious: Yes (Other)
  Sender: FDA-Public Use
  Company Number: 09US000265

PATIENT
  Age: 22 Year
  Sex: Female

DRUGS (9)
  1. HALLS SUGAR FREE COUGH DROPS (BLACK CHERRY) MENTHOL) DROP, DROP [Suspect]
     Indication: NASOPHARYNGITIS
     Dosage: 1 DROP, EVERY HOUR, ORAL
     Route: 048
     Dates: start: 20091001, end: 20091025
  2. HUMALOG [Concomitant]
  3. LANTUS [Concomitant]
  4. PROPRANOLOL [Concomitant]
  5. NORTRIPTYLINE HCL [Concomitant]
  6. PENTASA [Concomitant]
  7. DICYCLOMINE [Concomitant]
  8. PRILOSEC [Concomitant]
  9. HYDROCORTONE [Concomitant]

REACTIONS (2)
  - BLOOD GLUCOSE INCREASED [None]
  - CONVULSION [None]
